FAERS Safety Report 24441110 (Version 2)
Quarter: 2024Q4

REPORT INFORMATION
  Report Type: Spontaneous
  Country: US (occurrence: US)
  Receive Date: 20241016
  Receipt Date: 20241111
  Transmission Date: 20250115
  Serious: No
  Sender: ASTELLAS
  Company Number: US-ASTELLAS-2024-AER-012278

PATIENT
  Sex: Female

DRUGS (2)
  1. VEOZAH [Suspect]
     Active Substance: FEZOLINETANT
     Indication: Hot flush
     Dosage: EVERY OTHER DAY
     Route: 048
     Dates: start: 20240501
  2. VEOZAH [Suspect]
     Active Substance: FEZOLINETANT
     Dosage: EVERY OTHER DAY
     Route: 048
     Dates: start: 202408

REACTIONS (1)
  - Inappropriate schedule of product administration [Unknown]
